FAERS Safety Report 4317691-6 (Version None)
Quarter: 2004Q1

REPORT INFORMATION
  Report Type: 
  Country: None (occurrence: None)
  Receive Date: 20040315
  Receipt Date: 20040303
  Transmission Date: 20041129
  Serious: Yes (Hospitalization)
  Sender: FDA-Public Use
  Company Number: FR-BRISTOL-MYERS SQUIBB COMPANY-12523908

PATIENT
  Age: 74 Year
  Sex: Male

DRUGS (4)
  1. ELISOR TABS [Suspect]
     Dosage: DOSAGE FORM = TABLET
     Route: 048
     Dates: start: 20030308, end: 20030422
  2. PLAVIX [Suspect]
     Route: 048
     Dates: start: 20030308, end: 20030422
  3. ASPIRIN [Suspect]
     Route: 048
     Dates: start: 20030308, end: 20031008
  4. BISOPROLOL FUMARATE [Suspect]
     Dosage: DOSAGE FORM = TABLET
     Route: 048
     Dates: start: 20030308, end: 20030603

REACTIONS (7)
  - DERMATITIS EXFOLIATIVE [None]
  - ERYTHEMA [None]
  - HYPERKERATOSIS [None]
  - INSOMNIA [None]
  - LYMPHADENITIS [None]
  - LYMPHADENOPATHY [None]
  - PRURITUS [None]
